FAERS Safety Report 7183195-9 (Version None)
Quarter: 2010Q4

REPORT INFORMATION
  Report Type: 
  Country: None (occurrence: None)
  Receive Date: 20101222
  Receipt Date: 20100728
  Transmission Date: 20110411
  Serious: No
  Sender: FDA-Public Use
  Company Number: A0665268A

PATIENT
  Age: 47 Year
  Sex: Female

DRUGS (4)
  1. FLONASE [Suspect]
     Dosage: 120MCG PER DAY
     Route: 045
     Dates: start: 20050101, end: 20100601
  2. FLUTICASONE PROPIONATE [Suspect]
     Dosage: 2SPR PER DAY
     Route: 045
     Dates: start: 20090101, end: 20090101
  3. FLONASE [Suspect]
     Dosage: 2SPR PER DAY
     Route: 045
  4. NO CONCURRENT MEDICATION [Concomitant]

REACTIONS (6)
  - ADVERSE DRUG REACTION [None]
  - DYSGEUSIA [None]
  - FEELING ABNORMAL [None]
  - PRODUCT QUALITY ISSUE [None]
  - RHINORRHOEA [None]
  - THROAT IRRITATION [None]
